FAERS Safety Report 4289776-4 (Version None)
Quarter: 2004Q1

REPORT INFORMATION
  Report Type: 
  Country: None (occurrence: None)
  Receive Date: 20040210
  Receipt Date: 20031010
  Transmission Date: 20041129
  Serious: No
  Sender: FDA-Public Use
  Company Number: FR-GLAXOSMITHKLINE-B0311474A

PATIENT
  Age: 38 Year
  Sex: Male
  Weight: 60 kg

DRUGS (3)
  1. ZIAGEN [Suspect]
     Indication: HIV INFECTION
     Dosage: 1TAB TWICE PER DAY
     Route: 048
     Dates: start: 20030801, end: 20031002
  2. COMBIVIR [Concomitant]
     Indication: HIV INFECTION
     Dosage: 1TAB TWICE PER DAY
     Route: 048
     Dates: start: 20030801, end: 20031002
  3. SUBUTEX [Concomitant]
     Indication: DRUG DEPENDENCE
     Dosage: 8MG TWICE PER DAY
     Route: 058
     Dates: start: 19980101

REACTIONS (9)
  - ABDOMINAL PAIN [None]
  - DIARRHOEA [None]
  - DRUG HYPERSENSITIVITY [None]
  - DYSPHAGIA [None]
  - EOSINOPHILIA [None]
  - MUCOSAL ULCERATION [None]
  - ORAL CANDIDIASIS [None]
  - RASH [None]
  - WEIGHT DECREASED [None]
